FAERS Safety Report 9170212 (Version 2)
Quarter: 2013Q2

REPORT INFORMATION
  Report Type: Report from Study
  Country: US (occurrence: US)
  Receive Date: 20130319
  Receipt Date: 20130521
  Transmission Date: 20140414
  Serious: Yes (Death)
  Sender: FDA-Public Use
  Company Number: PHEH2013US006292

PATIENT
  Age: 60 Year
  Sex: Male
  Weight: 58.96 kg

DRUGS (1)
  1. ZOMETA [Suspect]
     Dosage: 4 MG/100 ML

REACTIONS (4)
  - Death [Fatal]
  - Abdominal pain [Unknown]
  - Asthenia [Unknown]
  - Confusional state [Unknown]
